FAERS Safety Report 5825205-4 (Version None)
Quarter: 2008Q3

REPORT INFORMATION
  Report Type: 
  Country: None (occurrence: None)
  Receive Date: 20080729
  Receipt Date: 20080721
  Transmission Date: 20090109
  Serious: Yes (Hospitalization, Other)
  Sender: FDA-Public Use
  Company Number: PHBS2008US05180

PATIENT
  Age: 54 Year
  Sex: Male

DRUGS (6)
  1. METHYLERGONOVINE MALEATE [Suspect]
     Indication: CLUSTER HEADACHE
  2. SUMATRIPTAN SUCCINATE [Suspect]
     Indication: CLUSTER HEADACHE
     Dosage: 100 TO 300 MG/DAY
     Route: 048
  3. SUMATRIPTAN SUCCINATE [Suspect]
     Dosage: 6 MG/DAY
     Route: 058
  4. VERAPAMIL [Suspect]
  5. LITHIUM CARBONATE [Suspect]
  6. TOPIRAMATE [Suspect]

REACTIONS (6)
  - ANGIOGRAM [None]
  - BLOOD PRESSURE INCREASED [None]
  - CHEST PAIN [None]
  - CLUSTER HEADACHE [None]
  - CORONARY ARTERY BYPASS [None]
  - MYOCARDIAL INFARCTION [None]
